FAERS Safety Report 6876589-X (Version None)
Quarter: 2010Q3

REPORT INFORMATION
  Report Type: 
  Country: None (occurrence: None)
  Receive Date: 20100727
  Receipt Date: 20100716
  Transmission Date: 20110219
  Serious: Yes (Other)
  Sender: FDA-Public Use
  Company Number: US-MYLANLABS-2010S1012964

PATIENT
  Sex: Male

DRUGS (7)
  1. METFORMIN HCL [Suspect]
  2. LANTUS [Suspect]
     Route: 058
     Dates: start: 20100630
  3. NIASPAN [Suspect]
  4. LASIX [Suspect]
  5. LISINOPRIL [Suspect]
  6. JANUVIA [Suspect]
  7. ASPIRIN [Concomitant]

REACTIONS (2)
  - BLOOD GLUCOSE INCREASED [None]
  - HYPERGLYCAEMIA [None]
